FAERS Safety Report 9514094 (Version 1)
Quarter: 2013Q3

REPORT INFORMATION
  Report Type: Report from Study
  Country: US (occurrence: US)
  Receive Date: 20130910
  Receipt Date: 20130910
  Transmission Date: 20140515
  Serious: Yes (Hospitalization, Other)
  Sender: FDA-Public Use
  Company Number: US-ROCHE-1271103

PATIENT
  Sex: Male
  Weight: 85.35 kg

DRUGS (1)
  1. ZELBORAF [Suspect]
     Indication: METASTATIC MALIGNANT MELANOMA
     Route: 048
     Dates: start: 20130624, end: 20130731

REACTIONS (4)
  - Hypophagia [Recovered/Resolved]
  - Anosmia [Recovered/Resolved]
  - Squamous cell carcinoma [Not Recovered/Not Resolved]
  - Weight decreased [Not Recovered/Not Resolved]
